FAERS Safety Report 9199010 (Version 1)
Quarter: 2013Q1

REPORT INFORMATION
  Report Type: Spontaneous
  Country: US (occurrence: None)
  Receive Date: 20130325
  Receipt Date: 20130325
  Transmission Date: 20140127
  Serious: No
  Sender: FDA-Public Use
  Company Number: 2013US-004592

PATIENT
  Age: 56 Year
  Sex: Female

DRUGS (8)
  1. OMONTYS (PEGINESATIDE) SOLUTION FOR INJECTION [Suspect]
     Indication: NEPHROGENIC ANAEMIA
     Route: 042
     Dates: start: 20130208, end: 20130208
  2. CATAPRES (CLONIDINE) [Concomitant]
  3. COZAAR (LOSARTAN POTASSIUM) [Concomitant]
  4. ERGOCALCIFEROL [Concomitant]
  5. FLONASE (FLUTICASONE PROPIONATE) [Concomitant]
  6. LACTOBACILLUS (LACTOBACILLUS ACIDOPHILUS) [Concomitant]
  7. LOPRESSOR (METOPROLOL TARTRATE) [Concomitant]
  8. OMEPRAZOLE [Concomitant]

REACTIONS (3)
  - Rash pruritic [None]
  - Rash [None]
  - Hypersensitivity [None]
